FAERS Safety Report 16316195 (Version 1)
Quarter: 2019Q2

REPORT INFORMATION
  Report Type: Spontaneous
  Country: US (occurrence: US)
  Receive Date: 20190515
  Receipt Date: 20190515
  Transmission Date: 20190711
  Serious: No
  Sender: FDA-Public Use
  Company Number: US-SA-2019SA128024

PATIENT
  Age: 52 Year
  Sex: Female

DRUGS (2)
  1. DUPIXENT [Suspect]
     Active Substance: DUPILUMAB
     Dosage: UNK UNK, 1X
     Route: 058
     Dates: start: 201804, end: 201804
  2. DUPIXENT [Suspect]
     Active Substance: DUPILUMAB
     Dosage: UNK
     Route: 058

REACTIONS (3)
  - Oropharyngeal pain [Unknown]
  - Dysphonia [Unknown]
  - Irritability [Unknown]

NARRATIVE: CASE EVENT DATE: 20190506
